FAERS Safety Report 23093601 (Version 1)
Quarter: 2023Q4

REPORT INFORMATION
  Report Type: Spontaneous
  Country: US (occurrence: None)
  Receive Date: 20231023
  Receipt Date: 20231023
  Transmission Date: 20240109
  Serious: Yes (Other)
  Sender: FDA-Public Use
  Company Number: US-SUPERNUS Pharmaceuticals, Inc.-SUP202309-003869

PATIENT

DRUGS (1)
  1. QELBREE [Suspect]
     Active Substance: VILOXAZINE HYDROCHLORIDE
     Indication: Attention deficit hyperactivity disorder
     Dosage: NOT PROVIDED

REACTIONS (4)
  - Suicidal ideation [Unknown]
  - Adverse drug reaction [Unknown]
  - Inability to afford medication [Unknown]
  - Product use issue [Unknown]
